FAERS Safety Report 4299748-1 (Version None)
Quarter: 2004Q1

REPORT INFORMATION
  Report Type: 
  Country: None (occurrence: None)
  Receive Date: 20040126
  Receipt Date: 20031117
  Transmission Date: 20041129
  Serious: No
  Sender: FDA-Public Use
  Company Number: USA031152744

PATIENT
  Age: 31 Year
  Sex: Male

DRUGS (3)
  1. STRATTERA [Suspect]
     Dosage: 60 MG/DAY
     Dates: start: 20031001
  2. RITALIN [Concomitant]
  3. VISTARIL [Concomitant]

REACTIONS (1)
  - DERMATITIS EXFOLIATIVE [None]
